FAERS Safety Report 6108234-5 (Version None)
Quarter: 2009Q1

REPORT INFORMATION
  Report Type: 
  Country: None (occurrence: None)
  Receive Date: 20090304
  Receipt Date: 20080710
  Transmission Date: 20090719
  Serious: Yes (Other)
  Sender: FDA-Public Use
  Company Number: US-001336

PATIENT
  Age: 26 Year
  Sex: Female
  Weight: 77.2 kg

DRUGS (2)
  1. ISOVUE-300 [Suspect]
     Indication: ABDOMEN SCAN
     Dosage: 150ML QD INTRAVENOUS (NOT OTHERWISE SPECIFIED)
     Route: 042
     Dates: start: 20080708, end: 20080708
  2. ISOVUE-300 [Suspect]
     Indication: PELVIC PAIN
     Dosage: 150ML QD INTRAVENOUS (NOT OTHERWISE SPECIFIED)
     Route: 042
     Dates: start: 20080708, end: 20080708

REACTIONS (1)
  - ANAPHYLACTIC SHOCK [None]
